FAERS Safety Report 6742923-4 (Version None)
Quarter: 2010Q2

REPORT INFORMATION
  Report Type: 
  Country: None (occurrence: None)
  Receive Date: 20100527
  Receipt Date: 20100519
  Transmission Date: 20101027
  Serious: Yes (Other)
  Sender: FDA-Public Use
  Company Number: BR-BIOGENIDEC-2010BI016941

PATIENT
  Age: 43 Year
  Sex: Male

DRUGS (2)
  1. AVONEX [Suspect]
     Indication: MULTIPLE SCLEROSIS
     Dosage: DOSE UNIT:30
     Route: 030
     Dates: start: 20070101, end: 20090801
  2. AVONEX [Suspect]
     Dosage: DOSE UNIT:30
     Route: 030
     Dates: end: 20100301

REACTIONS (1)
  - PULMONARY SARCOIDOSIS [None]
